FAERS Safety Report 4800405-0 (Version None)
Quarter: 2005Q4

REPORT INFORMATION
  Report Type: 
  Country: None (occurrence: None)
  Receive Date: 20051017
  Receipt Date: 20051007
  Transmission Date: 20060501
  Serious: Yes (Hospitalization)
  Sender: FDA-Public Use
  Company Number: PHRM2005FR02657

PATIENT
  Sex: Female

DRUGS (1)
  1. LEPONEX [Suspect]
     Indication: SCHIZOPHRENIA
     Dosage: 750 MG DAILY
     Route: 048

REACTIONS (3)
  - CEREBELLAR SYNDROME [None]
  - CONFUSIONAL STATE [None]
  - MYOCLONUS [None]
